FAERS Safety Report 6977671-9 (Version None)
Quarter: 2010Q3

REPORT INFORMATION
  Report Type: 
  Country: None (occurrence: None)
  Receive Date: 20100913
  Receipt Date: 20100903
  Transmission Date: 20110219
  Serious: No
  Sender: FDA-Public Use
  Company Number: US-BIOGENIDEC-2010BI023674

PATIENT
  Age: 55 Year
  Sex: Female

DRUGS (2)
  1. TYSABRI [Suspect]
     Indication: MULTIPLE SCLEROSIS
     Route: 042
     Dates: start: 20090101, end: 20100101
  2. TYSABRI [Suspect]
     Route: 042
     Dates: start: 20100101

REACTIONS (4)
  - CHILLS [None]
  - INFUSION RELATED REACTION [None]
  - MUSCLE SPASMS [None]
  - NAUSEA [None]
